FAERS Safety Report 9412063 (Version 3)
Quarter: 2014Q2

REPORT INFORMATION
  Report Type: Spontaneous
  Country: US (occurrence: US)
  Receive Date: 20130722
  Receipt Date: 20140429
  Transmission Date: 20141212
  Serious: Yes (Hospitalization, Disabling, Other)
  Sender: FDA-Public Use
  Company Number: US-BAYER-2013-086934

PATIENT
  Age: 33 Year
  Sex: Female
  Weight: 131.52 kg

DRUGS (13)
  1. YAZ [Suspect]
     Indication: ACNE
     Dosage: UNK
     Dates: start: 2007, end: 2010
  2. YAZ [Suspect]
     Indication: OVARIAN CYST
  3. YASMIN [Suspect]
     Indication: ACNE
     Dosage: UNK
     Dates: start: 2007, end: 2010
  4. YASMIN [Suspect]
     Indication: OVARIAN CYST
  5. OCELLA [Suspect]
     Indication: ACNE
     Dosage: UNK
     Dates: start: 2003, end: 2004
  6. OCELLA [Suspect]
     Indication: OVARIAN CYST
     Dosage: UNK
     Dates: start: 2003, end: 2006
  7. XANAX [Concomitant]
  8. ZOLOFT [Concomitant]
  9. ALBUTEROL [Concomitant]
  10. LIPITOR [Concomitant]
  11. FLOVENT [Concomitant]
  12. COLACE [Concomitant]
  13. VITAMIN B12 [Concomitant]

REACTIONS (14)
  - Cerebrovascular accident [None]
  - Transient ischaemic attack [None]
  - Myocardial infarction [None]
  - Deep vein thrombosis [Recovered/Resolved]
  - Thrombophlebitis [Recovered/Resolved]
  - Cerebral artery occlusion [None]
  - Injury [None]
  - Pain [Recovered/Resolved]
  - Deformity [Recovered/Resolved]
  - Anxiety [None]
  - Anhedonia [None]
  - Life expectancy shortened [None]
  - Amnesia [None]
  - Cognitive disorder [None]
